FAERS Safety Report 9670476 (Version 3)
Quarter: 2014Q1

REPORT INFORMATION
  Report Type: Report from Study
  Country: CA (occurrence: CA)
  Receive Date: 20131106
  Receipt Date: 20140203
  Transmission Date: 20141002
  Serious: Yes (Other)
  Sender: FDA-Public Use
  Company Number: CA-ROCHE-1299272

PATIENT
  Age: 47 Year
  Sex: Female

DRUGS (11)
  1. RITUXAN [Suspect]
     Indication: RHEUMATOID ARTHRITIS
     Dosage: FREQUENCY: DAY 1 + 15
     Route: 042
     Dates: start: 20070807
  2. RITUXAN [Suspect]
     Route: 042
     Dates: start: 20130501
  3. DIPHENHYDRAMINE HCL [Concomitant]
     Indication: PREMEDICATION
     Route: 048
     Dates: start: 20091104
  4. ACETAMINOPHEN [Concomitant]
     Indication: PREMEDICATION
     Route: 048
     Dates: start: 20091104
  5. ACETAMINOPHEN [Concomitant]
     Route: 048
     Dates: start: 20120209
  6. METHYLPREDNISOLONE [Concomitant]
     Indication: PREMEDICATION
     Route: 042
     Dates: start: 20091104
  7. CELEBREX [Concomitant]
  8. PREDNISONE [Concomitant]
  9. METHOTREXATE [Concomitant]
  10. NEXIUM [Concomitant]
  11. FOLIC ACID [Concomitant]

REACTIONS (2)
  - Bunion [Unknown]
  - Arthrodesis [Unknown]
